FAERS Safety Report 7133218-8 (Version None)
Quarter: 2010Q4

REPORT INFORMATION
  Report Type: 
  Country: None (occurrence: None)
  Receive Date: 20101202
  Receipt Date: 20101122
  Transmission Date: 20110411
  Serious: Yes (Hospitalization)
  Sender: FDA-Public Use
  Company Number: US-EISAI INC.-E7389-01026-CLI-US

PATIENT
  Sex: Female
  Weight: 67 kg

DRUGS (7)
  1. E7389 (BOLD) [Suspect]
     Route: 041
     Dates: start: 20101008
  2. HYDROCHLOROTHIAZIDE [Concomitant]
     Route: 048
  3. PROTONIX [Concomitant]
     Route: 048
  4. PREDNISONE [Concomitant]
     Route: 048
  5. LASIX [Concomitant]
     Route: 048
  6. GLUCOPHAGE [Concomitant]
     Route: 048
  7. POTASSIUM CHLORIDE [Concomitant]
     Route: 048

REACTIONS (2)
  - HYPOKALAEMIA [None]
  - TACHYARRHYTHMIA [None]
